FAERS Safety Report 10772149 (Version 1)
Quarter: 2015Q1

REPORT INFORMATION
  Report Type: Other
  Country: US (occurrence: US)
  Receive Date: 20150206
  Receipt Date: 20150206
  Transmission Date: 20150721
  Serious: No
  Sender: FDA-Public Use
  Company Number: US-ACORDA-ACO_105273_2014

PATIENT
  Age: 58 Year
  Sex: Male

DRUGS (8)
  1. TAMSULOSIN [Concomitant]
     Active Substance: TAMSULOSIN
     Indication: PRODUCT USED FOR UNKNOWN INDICATION
     Dosage: 0.4 MG, DAILY
     Route: 048
  2. AMPYRA [Suspect]
     Active Substance: DALFAMPRIDINE
     Indication: FATIGUE
     Dosage: 10 MG, EVERY 12 HOURS
     Route: 048
     Dates: start: 201307, end: 201404
  3. MIRAPEX [Concomitant]
     Active Substance: PRAMIPEXOLE DIHYDROCHLORIDE
     Indication: PRODUCT USED FOR UNKNOWN INDICATION
     Dosage: 0.25 MG, HS
     Route: 048
  4. BETASERON [Concomitant]
     Active Substance: INTERFERON BETA-1B
     Indication: IMMUNOMODULATORY THERAPY
     Dosage: 0.3 MG, EVERY OTHER DAY
     Route: 058
  5. CELEXA [Concomitant]
     Active Substance: CITALOPRAM HYDROBROMIDE
     Indication: PRODUCT USED FOR UNKNOWN INDICATION
     Dosage: 20 MG, DAILY
     Route: 048
  6. AMPYRA [Suspect]
     Active Substance: DALFAMPRIDINE
     Dosage: 10 MG, ONCE DAILY
     Route: 065
     Dates: start: 20140822
  7. BACLOFEN. [Concomitant]
     Active Substance: BACLOFEN
     Indication: PRODUCT USED FOR UNKNOWN INDICATION
     Dosage: 10 MG, 4 TIMES DAILY
     Route: 048
  8. OXYBUTYNIN [Concomitant]
     Active Substance: OXYBUTYNIN
     Indication: PRODUCT USED FOR UNKNOWN INDICATION
     Dosage: 10 MG, DAILY
     Route: 048

REACTIONS (2)
  - Drug ineffective [Recovered/Resolved]
  - Therapeutic response unexpected [Not Recovered/Not Resolved]

NARRATIVE: CASE EVENT DATE: 20140519
